FAERS Safety Report 4312166-2 (Version None)
Quarter: 2004Q1

REPORT INFORMATION
  Report Type: 
  Country: None (occurrence: None)
  Receive Date: 20040303
  Receipt Date: 20040220
  Transmission Date: 20041129
  Serious: Yes (Hospitalization)
  Sender: FDA-Public Use
  Company Number: ZA-JNJFOC-20040205107

PATIENT
  Age: 81 Year
  Sex: Female

DRUGS (2)
  1. DURAGESIC [Suspect]
     Indication: OSTEOARTHRITIS
     Dosage: 25 UG/HR, TRANSDERMAL
     Route: 062
     Dates: start: 20040129, end: 20040215
  2. COVERSYL (PERINDOPRIL) [Concomitant]

REACTIONS (6)
  - ANOREXIA [None]
  - CIRCULATORY COLLAPSE [None]
  - DEHYDRATION [None]
  - HALLUCINATION [None]
  - MYDRIASIS [None]
  - NAUSEA [None]
